FAERS Safety Report 8517329-8 (Version None)
Quarter: 2012Q3

REPORT INFORMATION
  Report Type: 
  Country: None (occurrence: None)
  Receive Date: 20120718
  Receipt Date: 20120706
  Transmission Date: 20120928
  Serious: Yes (Hospitalization)
  Sender: FDA-Public Use
  Company Number: AT-CELGENEUS-009-21880-11081581

PATIENT
  Age: 68 Year
  Sex: Female
  Weight: 75 kg

DRUGS (24)
  1. CARFILZOMIB [Suspect]
     Dosage: 50 MILLIGRAM
     Route: 041
     Dates: start: 20110816, end: 20110817
  2. CIPROFLOXACIN HCL [Concomitant]
     Dosage: 500 MILLIGRAM
     Route: 048
     Dates: start: 20110809, end: 20110817
  3. ITERIUM [Concomitant]
     Indication: HYPERTONIA
     Dosage: 1 MILLIGRAM
     Route: 048
     Dates: start: 20100701, end: 20110701
  4. PAMITOR [Concomitant]
     Indication: MULTIPLE MYELOMA
     Route: 041
     Dates: start: 20090507
  5. PANTOPRAZOLE SODIUM [Concomitant]
     Indication: DRUG THERAPY
     Dosage: 40 MILLIGRAM
     Route: 048
     Dates: start: 20110809
  6. LASIX [Concomitant]
     Indication: HYPERTONIA
     Route: 048
     Dates: start: 20110811, end: 20111018
  7. NEBILAN [Concomitant]
     Indication: HYPERTONIA
     Dosage: 5 MILLIGRAM
     Route: 048
  8. SIMVASTATIN [Concomitant]
     Indication: PROPHYLAXIS
     Dosage: 20 MILLIGRAM
     Route: 048
     Dates: start: 20100401
  9. GLANDOMED [Concomitant]
     Indication: PROPHYLAXIS
     Dosage: 4 DOSAGE FORMS
     Route: 048
     Dates: start: 20110811
  10. REVLIMID [Suspect]
     Indication: MULTIPLE MYELOMA
     Dosage: 25 MILLIGRAM
     Route: 048
     Dates: start: 20110809, end: 20110829
  11. REVLIMID [Suspect]
     Dosage: 25 MILLIGRAM
     Route: 048
     Dates: start: 20110908, end: 20110912
  12. CARFILZOMIB [Suspect]
     Dosage: 49.7 MILLIGRAM
     Route: 041
     Dates: start: 20110906, end: 20110907
  13. CALCITONIN SALMON [Concomitant]
     Indication: PROPHYLAXIS
     Dosage: 3 DOSAGE FORMS
     Route: 045
     Dates: start: 20110728, end: 20110815
  14. MYCOSTATIN [Concomitant]
     Indication: PROPHYLAXIS
     Dosage: 1500000 IU (INTERNATIONAL UNIT)
     Route: 048
     Dates: start: 20110811, end: 20110901
  15. CARFILZOMIB [Suspect]
     Dosage: 49.7 MILLIGRAM
     Route: 041
     Dates: start: 20110823, end: 20110824
  16. DEXAMETHASONE [Suspect]
     Indication: MULTIPLE MYELOMA
     Route: 065
     Dates: start: 20110809, end: 20110830
  17. DEXAMETHASONE [Suspect]
     Route: 065
     Dates: start: 20110906
  18. UROSIN [Concomitant]
     Indication: PROPHYLAXIS
     Dosage: 100 MILLIGRAM
     Route: 048
     Dates: start: 20110809
  19. MARCUMAR [Concomitant]
     Indication: ANTICOAGULANT THERAPY
     Route: 048
     Dates: start: 20110809, end: 20111020
  20. MARCUMAR [Concomitant]
     Indication: ANTIPLATELET THERAPY
  21. CARFILZOMIB [Suspect]
     Indication: MULTIPLE MYELOMA
     Dosage: 36 MILLIGRAM
     Route: 041
     Dates: start: 20110809, end: 20110810
  22. CARFILZOMIB [Suspect]
     Dosage: 49.7 MILLIGRAM
     Route: 041
     Dates: start: 20110913, end: 20110914
  23. VALTREX [Concomitant]
     Indication: ANTIVIRAL PROPHYLAXIS
     Dosage: 1500 MILLIGRAM
     Route: 048
     Dates: start: 20110809
  24. AUGMENTIN '500' [Concomitant]
     Indication: ANTIBIOTIC PROPHYLAXIS
     Dosage: 2 GRAM
     Route: 048
     Dates: start: 20110818, end: 20110823

REACTIONS (3)
  - VENTRICULAR ARRHYTHMIA [None]
  - ASTHENIA [None]
  - PYREXIA [None]
